FAERS Safety Report 11944515 (Version 1)
Quarter: 2016Q1

REPORT INFORMATION
  Report Type: Report from Study
  Country: IT (occurrence: IT)
  Receive Date: 20160125
  Receipt Date: 20160125
  Transmission Date: 20160526
  Serious: Yes (Hospitalization)
  Sender: FDA-Public Use
  Company Number: IT-SA-2015SA120891

PATIENT
  Age: 77 Year
  Sex: Male

DRUGS (5)
  1. TARCEVA [Concomitant]
     Active Substance: ERLOTINIB HYDROCHLORIDE
     Dosage: 1 TABLET DAILY
     Route: 048
     Dates: start: 2013
  2. COTAREG [Concomitant]
     Active Substance: HYDROCHLOROTHIAZIDE\VALSARTAN
     Dosage: 1 TABLET DAILY
     Route: 048
     Dates: start: 2013
  3. CARDIRENE [Concomitant]
     Active Substance: ASPIRIN DL-LYSINE
     Dosage: 160 MG/1 SACHET DAILY
     Route: 048
     Dates: start: 2013
  4. CEREZYME [Suspect]
     Active Substance: IMIGLUCERASE
     Dosage: 4 VIALS
     Route: 041
     Dates: start: 20141007
  5. TRIATEC [Concomitant]
     Active Substance: RAMIPRIL
     Dosage: 1 TABLET DAILY
     Route: 048
     Dates: start: 2013

REACTIONS (1)
  - Seizure [Not Recovered/Not Resolved]

NARRATIVE: CASE EVENT DATE: 20150809
